FAERS Safety Report 5989278-0 (Version None)
Quarter: 2008Q4

REPORT INFORMATION
  Report Type: 
  Country: None (occurrence: None)
  Receive Date: 20081205
  Receipt Date: 20081128
  Transmission Date: 20090506
  Serious: No
  Sender: FDA-Public Use
  Company Number: 2008SP016803

PATIENT
  Age: 38 Year
  Sex: Male
  Weight: 79 kg

DRUGS (11)
  1. TEMODAL [Suspect]
     Indication: OLIGODENDROGLIOMA
     Dosage: ;PO, 150 MG/M2;QD;PO, 200 MG/M2;QD;PO, 200 MG/M2;QD;PO
     Route: 048
     Dates: start: 20061221, end: 20061225
  2. TEMODAL [Suspect]
     Indication: OLIGODENDROGLIOMA
     Dosage: ;PO, 150 MG/M2;QD;PO, 200 MG/M2;QD;PO, 200 MG/M2;QD;PO
     Route: 048
     Dates: start: 20070228, end: 20070304
  3. TEMODAL [Suspect]
     Indication: OLIGODENDROGLIOMA
     Dosage: ;PO, 150 MG/M2;QD;PO, 200 MG/M2;QD;PO, 200 MG/M2;QD;PO
     Route: 048
     Dates: start: 20070328, end: 20070401
  4. TEMODAL [Suspect]
     Indication: OLIGODENDROGLIOMA
     Dosage: ;PO, 150 MG/M2;QD;PO, 200 MG/M2;QD;PO, 200 MG/M2;QD;PO
     Route: 048
     Dates: start: 20070509, end: 20070517
  5. COTRIM [Concomitant]
  6. KYTRIL [Concomitant]
  7. ALEVIATIN [Concomitant]
  8. INDERAL [Concomitant]
  9. SUCRALFATE [Concomitant]
  10. SOLANAX [Concomitant]
  11. GASDOCK [Concomitant]

REACTIONS (3)
  - ABDOMINAL DISCOMFORT [None]
  - BRAIN OEDEMA [None]
  - FEELING ABNORMAL [None]
